FAERS Safety Report 4760260-4 (Version None)
Quarter: 2005Q3

REPORT INFORMATION
  Report Type: 
  Country: None (occurrence: None)
  Receive Date: 20050831
  Receipt Date: 20050822
  Transmission Date: 20060218
  Serious: Yes (Other)
  Sender: FDA-Public Use
  Company Number: 2005109391

PATIENT
  Age: 48 Year
  Sex: Female
  Weight: 66.6788 kg

DRUGS (4)
  1. CELEBREX [Suspect]
     Indication: BACK DISORDER
  2. RISPERDAL [Concomitant]
  3. STELAZINE [Concomitant]
  4. DRUG, UNSPECIFIED [Concomitant]

REACTIONS (3)
  - DEPRESSED LEVEL OF CONSCIOUSNESS [None]
  - PITUITARY TUMOUR [None]
  - UNEVALUABLE EVENT [None]
